FAERS Safety Report 9120887 (Version 1)
Quarter: 2013Q1

REPORT INFORMATION
  Report Type: Spontaneous
  Country: CA (occurrence: CA)
  Receive Date: 20130226
  Receipt Date: 20130226
  Transmission Date: 20140127
  Serious: Yes (Hospitalization)
  Sender: FDA-Public Use
  Company Number: CA-GLAXOSMITHKLINE-A1013293A

PATIENT
  Sex: Female

DRUGS (1)
  1. ADVAIR [Suspect]
     Indication: ASTHMA
     Dosage: 1PUFF TWICE PER DAY
     Route: 055
     Dates: start: 2011

REACTIONS (5)
  - Pneumonia [Not Recovered/Not Resolved]
  - Circulatory collapse [Unknown]
  - Drug ineffective [Unknown]
  - Lung disorder [Unknown]
  - Feeling cold [Unknown]
